FAERS Safety Report 4994855-X (Version None)
Quarter: 2006Q2

REPORT INFORMATION
  Report Type: 
  Country: None (occurrence: None)
  Receive Date: 20060508
  Receipt Date: 20060309
  Transmission Date: 20061013
  Serious: Yes (Hospitalization)
  Sender: FDA-Public Use
  Company Number: US-AMGEN-US171833

PATIENT
  Sex: Male
  Weight: 101 kg

DRUGS (10)
  1. KEPIVANCE [Suspect]
     Indication: STOMATITIS
     Route: 042
     Dates: start: 20060306
  2. VALTREX [Concomitant]
     Route: 065
  3. DOXYCYCLINE [Concomitant]
     Route: 065
  4. POTASSIUM [Concomitant]
     Route: 065
  5. MAGNESIUM [Concomitant]
     Route: 065
  6. RESTORIL [Concomitant]
     Route: 065
  7. NEXIUM [Concomitant]
     Route: 065
  8. ACTIGALL [Concomitant]
     Route: 065
  9. BUSULFAN [Concomitant]
     Route: 065
     Dates: start: 20060409
  10. MELPHALAN [Concomitant]
     Route: 065
     Dates: start: 20060409

REACTIONS (13)
  - ANXIETY [None]
  - ATRIAL FIBRILLATION [None]
  - ATRIAL FLUTTER [None]
  - CYTOMEGALOVIRUS INFECTION [None]
  - DEPRESSION [None]
  - DIARRHOEA [None]
  - ENTEROCOCCAL INFECTION [None]
  - ERYTHEMA [None]
  - GRAFT VERSUS HOST DISEASE [None]
  - HYPERTENSION [None]
  - MUCOSAL INFLAMMATION [None]
  - RASH MACULAR [None]
  - URINARY RETENTION [None]
